FAERS Safety Report 6803028 (Version 16)
Quarter: 2013Q4

REPORT INFORMATION
  Report Type: Spontaneous
  Country: US (occurrence: US)
  Receive Date: 20081104
  Receipt Date: 20131219
  Transmission Date: 20140711
  Serious: Yes (Death, Other)
  Sender: FDA-Public Use
  Company Number: PHEH2008US09641

PATIENT
  Age: 83 Year
  Sex: Female

DRUGS (27)
  1. ZOMETA [Suspect]
     Indication: BREAST CANCER METASTATIC
     Route: 042
     Dates: start: 2003
  2. ZOMETA [Suspect]
     Dosage: 3 MG, QW4
     Route: 042
  3. LASIX [Concomitant]
     Dosage: 20 MG, EVERY OTHER DAY
  4. K-DUR [Concomitant]
     Dosage: 20 MG, EVERY OTHER DAY
  5. PREVACID [Concomitant]
     Dosage: 30 MG, QD
  6. PROMETHAZINE [Concomitant]
  7. PREDNISONE [Concomitant]
     Route: 048
  8. XELODA [Concomitant]
  9. FOSAMAX [Concomitant]
     Dosage: 10 MG, QD
     Route: 048
  10. CARDIZEM [Concomitant]
     Dosage: 120 MG, QD
     Route: 048
  11. LIPITOR [Concomitant]
     Dosage: 20 MG, QD
     Route: 048
  12. ATACAND [Concomitant]
     Dosage: 16 MG, QD
     Route: 048
  13. CARBOPLATIN [Concomitant]
  14. TAXOL [Concomitant]
     Dates: end: 200212
  15. ADRIAMYCIN [Concomitant]
  16. TAXOTERE [Concomitant]
     Dates: end: 20020813
  17. ZOFRAN [Concomitant]
  18. ARIMIDEX [Concomitant]
  19. MACROBID [Concomitant]
  20. LEVAQUIN [Concomitant]
     Dosage: 500 MG, QD
  21. DETROL                                  /USA/ [Concomitant]
  22. DOXYCYCLINE [Concomitant]
  23. CHEMOTHERAPEUTICS [Concomitant]
  24. DITROPAN [Concomitant]
  25. REGLAN [Concomitant]
     Dosage: 10 MG, PRN
  26. SENOKOT [Concomitant]
  27. DEXAMETHASONE [Concomitant]
     Dosage: 4 MG, TID

REACTIONS (93)
  - Death [Fatal]
  - Pneumothorax [Unknown]
  - Atelectasis [Unknown]
  - Nephrolithiasis [Unknown]
  - Hydronephrosis [Unknown]
  - Hepatic neoplasm [Unknown]
  - Hepatic mass [Unknown]
  - Ascites [Unknown]
  - Abdominal pain [Unknown]
  - Oedema [Unknown]
  - Metastatic neoplasm [Unknown]
  - Chronic obstructive pulmonary disease [Unknown]
  - Pleural effusion [Unknown]
  - Osteonecrosis of jaw [Unknown]
  - Osteomyelitis [Unknown]
  - Infection [Unknown]
  - Facial pain [Unknown]
  - Abscess [Unknown]
  - Purulent discharge [Unknown]
  - Pyrexia [Unknown]
  - Mucosal necrosis [Unknown]
  - Injury [Unknown]
  - Quality of life decreased [Unknown]
  - Hypertension [Unknown]
  - Pollakiuria [Unknown]
  - Gastrointestinal hypomotility [Unknown]
  - Arthritis [Unknown]
  - Osteopenia [Unknown]
  - Vomiting [Unknown]
  - Large intestinal obstruction [Unknown]
  - Metastases to abdominal cavity [Unknown]
  - Ovarian cancer [Unknown]
  - Second primary malignancy [Unknown]
  - Constipation [Unknown]
  - Hypoaesthesia [Unknown]
  - Paraesthesia [Unknown]
  - Colon cancer [Unknown]
  - Osteoporosis [Unknown]
  - Oedema peripheral [Unknown]
  - Metastases to bone [Unknown]
  - Renal atrophy [Unknown]
  - Ureteric obstruction [Unknown]
  - Dysuria [Recovering/Resolving]
  - Renal cyst [Unknown]
  - Intestinal stenosis [Unknown]
  - Cough [Unknown]
  - Intestinal dilatation [Unknown]
  - Myocardial infarction [Unknown]
  - Dyspnoea [Unknown]
  - Hepatic cirrhosis [Unknown]
  - Spinal osteoarthritis [Unknown]
  - Intervertebral disc protrusion [Unknown]
  - Intervertebral disc space narrowing [Unknown]
  - Cholelithiasis [Unknown]
  - Thyroid neoplasm [Unknown]
  - Arteriosclerosis coronary artery [Unknown]
  - Arteriosclerosis [Unknown]
  - Aortic disorder [Unknown]
  - Cataract [Not Recovered/Not Resolved]
  - Lacrimation increased [Unknown]
  - Eye discharge [Unknown]
  - Vitreous detachment [Unknown]
  - Osteosclerosis [Unknown]
  - Aortic calcification [Unknown]
  - Osteoarthritis [Unknown]
  - Abdominal distension [Unknown]
  - Faecal vomiting [Unknown]
  - Left atrial dilatation [Unknown]
  - Osteolysis [Unknown]
  - Pulmonary mass [Unknown]
  - Mitral valve calcification [Unknown]
  - Gastrooesophageal reflux disease [Unknown]
  - Ulcer haemorrhage [Unknown]
  - Upper respiratory tract infection [Recovered/Resolved]
  - Hepatic cyst [Unknown]
  - Diverticulum intestinal [Unknown]
  - Metastases to liver [Unknown]
  - Pulmonary fibrosis [Unknown]
  - Thrombocytopenia [Unknown]
  - Vertebral foraminal stenosis [Unknown]
  - Mass [Unknown]
  - Pleural fibrosis [Unknown]
  - Rib deformity [Unknown]
  - Bone fragmentation [Unknown]
  - Aortic arteriosclerosis [Unknown]
  - Burning sensation [Unknown]
  - Mouth haemorrhage [Unknown]
  - Bladder dilatation [Unknown]
  - Arthralgia [Unknown]
  - Back pain [Unknown]
  - Nausea [Unknown]
  - Fatigue [Unknown]
  - Pain in extremity [Unknown]
